FAERS Safety Report 12766040 (Version 1)
Quarter: 2016Q3

REPORT INFORMATION
  Report Type: Spontaneous
  Country: US (occurrence: US)
  Receive Date: 20160920
  Receipt Date: 20160920
  Transmission Date: 20161109
  Serious: Yes (Death, Life-Threatening, Hospitalization, Other)
  Sender: FDA-Public Use
  Company Number: None

PATIENT
  Age: 52 Year
  Sex: Female
  Weight: 53.6 kg

DRUGS (1)
  1. CEFTRIAXONE. [Suspect]
     Active Substance: CEFTRIAXONE
     Indication: PNEUMONIA
     Route: 040
     Dates: start: 20160622, end: 20160627

REACTIONS (3)
  - Cardiac arrest [None]
  - Haemoglobin decreased [None]
  - Haemolytic anaemia [None]

NARRATIVE: CASE EVENT DATE: 20160627
